FAERS Safety Report 7199105-4 (Version None)
Quarter: 2010Q4

REPORT INFORMATION
  Report Type: 
  Country: None (occurrence: None)
  Receive Date: 20101126
  Receipt Date: 20100708
  Transmission Date: 20110411
  Serious: Yes (Other)
  Sender: FDA-Public Use
  Company Number: CIP09000090

PATIENT
  Sex: Female

DRUGS (11)
  1. ACTONEL [Suspect]
     Indication: OSTEOPENIA
     Dosage: 35 MG, 1 /WEEK, ORAL
     Route: 048
     Dates: start: 20031022, end: 20070512
  2. ASPIRIN [Concomitant]
  3. CARDIZEM [Concomitant]
  4. LIPITOR [Concomitant]
  5. SYNTHROID [Concomitant]
  6. TENORMIN [Concomitant]
  7. PREMARIN [Concomitant]
  8. CALCIUM (CALCIUM) [Concomitant]
  9. VITAMIN D NOS (VITAMIN D NOS) [Concomitant]
  10. LISINOPRIL [Concomitant]
  11. HYZAAR /01284801/ (HYDROCHLOROTHIAZIDE, LOSARTAN POTASSIUM) [Concomitant]

REACTIONS (19)
  - ACTINOMYCOSIS [None]
  - ALVEOLAR OSTEITIS [None]
  - BLOODY DISCHARGE [None]
  - BONE FORMATION INCREASED [None]
  - BONE FRAGMENTATION [None]
  - DYSAESTHESIA [None]
  - IMPAIRED HEALING [None]
  - JAW DISORDER [None]
  - JAW FRACTURE [None]
  - OSTEOMYELITIS [None]
  - OSTEONECROSIS OF JAW [None]
  - PAIN IN JAW [None]
  - PERIODONTAL DISEASE [None]
  - PRIMARY SEQUESTRUM [None]
  - PURULENT DISCHARGE [None]
  - SENSATION OF PRESSURE [None]
  - STAPHYLOCOCCAL OSTEOMYELITIS [None]
  - TONGUE ULCERATION [None]
  - TOOTHACHE [None]
